FAERS Safety Report 24763522 (Version 1)
Quarter: 2024Q4

REPORT INFORMATION
  Report Type: Spontaneous
  Country: US (occurrence: US)
  Receive Date: 20241223
  Receipt Date: 20241223
  Transmission Date: 20250114
  Serious: No
  Sender: ACCORD
  Company Number: US-Accord-431450

PATIENT
  Age: 64 Year
  Sex: Female
  Weight: 54.43 kg

DRUGS (1)
  1. METHYLPHENIDATE HYDROCHLORIDE [Suspect]
     Active Substance: METHYLPHENIDATE HYDROCHLORIDE
     Indication: Attention deficit hyperactivity disorder
     Dosage: STRENGTH: 10MG, BY MOUTH, THREE TIMES DAILY
     Dates: start: 2020

REACTIONS (2)
  - Anxiety [Unknown]
  - Drug screen negative [Unknown]
